FAERS Safety Report 8281906-2 (Version None)
Quarter: 2012Q2

REPORT INFORMATION
  Report Type: 
  Country: None (occurrence: None)
  Receive Date: 20120410
  Receipt Date: 20120406
  Transmission Date: 20120825
  Serious: Yes (Other)
  Sender: FDA-Public Use
  Company Number: ADR-2011-9912

PATIENT
  Age: 50 Year
  Sex: Female

DRUGS (1)
  1. LIORESAL [Suspect]
     Indication: MUSCLE SPASTICITY
     Dosage: MCG, DAILY, INTR
     Route: 037

REACTIONS (3)
  - MEDICAL DEVICE COMPLICATION [None]
  - INFUSION SITE MASS [None]
  - INFUSION SITE INFLAMMATION [None]
